FAERS Safety Report 16938876 (Version 1)
Quarter: 2019Q4

REPORT INFORMATION
  Report Type: Report from Study
  Country: AU (occurrence: AU)
  Receive Date: 20191020
  Receipt Date: 20191020
  Transmission Date: 20200122
  Serious: Yes (Other)
  Sender: FDA-Public Use
  Company Number: PHHY2018AU000904

PATIENT
  Age: 52 Year
  Sex: Female

DRUGS (4)
  1. GILENYA [Suspect]
     Active Substance: FINGOLIMOD HYDROCHLORIDE
     Indication: MULTIPLE SCLEROSIS
     Dosage: UNK, QD
     Route: 048
     Dates: start: 20171115, end: 20180606
  2. GILENYA [Suspect]
     Active Substance: FINGOLIMOD HYDROCHLORIDE
     Dosage: UNK
  3. LORATADINE. [Concomitant]
     Active Substance: LORATADINE
     Indication: MULTIPLE SCLEROSIS
     Dosage: UNK
     Route: 065
     Dates: start: 20180716, end: 20180730
  4. METHYLPREDNISOLONE. [Concomitant]
     Active Substance: METHYLPREDNISOLONE
     Indication: MULTIPLE SCLEROSIS
     Dosage: UNK
     Route: 065
     Dates: start: 20180716, end: 20180730

REACTIONS (25)
  - Hypotension [Unknown]
  - Sleep disorder [Recovered/Resolved]
  - Menstruation irregular [Unknown]
  - Hypersensitivity [Recovered/Resolved]
  - Hypersensitivity [Recovered/Resolved]
  - Human rhinovirus test positive [Recovered/Resolved]
  - Viral pericarditis [Recovered/Resolved]
  - Syncope [Recovered/Resolved]
  - Laryngitis [Recovered/Resolved]
  - Paraesthesia [Unknown]
  - Balance disorder [Recovered/Resolved]
  - Muscle spasms [Unknown]
  - Cataract [Not Recovered/Not Resolved]
  - Laryngitis [Recovered/Resolved]
  - Dyspnoea [Unknown]
  - Vitreous detachment [Not Recovered/Not Resolved]
  - Central nervous system lesion [Not Recovered/Not Resolved]
  - Hypertension [Recovered/Resolved]
  - Bursitis [Unknown]
  - Chest pain [Recovered/Resolved]
  - Muscular weakness [Recovered/Resolved]
  - Urticaria [Unknown]
  - Pruritus [Unknown]
  - Lethargy [Recovered/Resolved]
  - Pain in extremity [Unknown]

NARRATIVE: CASE EVENT DATE: 20180108
